FAERS Safety Report 24540408 (Version 1)
Quarter: 2024Q4

REPORT INFORMATION
  Report Type: Spontaneous
  Country: US (occurrence: None)
  Receive Date: 20241023
  Receipt Date: 20241023
  Transmission Date: 20250114
  Serious: Yes (Other)
  Sender: Public
  Company Number: None

PATIENT
  Age: 40 Year
  Sex: Female

DRUGS (1)
  1. FASENRA [Suspect]
     Active Substance: BENRALIZUMAB
     Indication: Asthma
     Dosage: OTHER FREQUENCY : EVERY 4 WEEKSSC;?
     Route: 058
     Dates: start: 20241021, end: 20241021

REACTIONS (4)
  - Heart rate increased [None]
  - Blood pressure increased [None]
  - Dysphonia [None]
  - Hypersensitivity [None]

NARRATIVE: CASE EVENT DATE: 20241021
